FAERS Safety Report 8393728 (Version 2)
Quarter: 2012Q4

REPORT INFORMATION
  Report Type: 
  Country: US (occurrence: US)
  Receive Date: 20120207
  Receipt Date: 20121107
  Transmission Date: 20130627
  Serious: Yes (Other)
  Sender: FDA-Public Use
  Company Number: US-ROCHE-784278

PATIENT
  Sex: Male
  Weight: 68.1 kg

DRUGS (5)
  1. ACCUTANE [Suspect]
     Indication: ACNE
     Route: 065
     Dates: start: 20020707, end: 20021027
  2. MERCAPTOPURINE [Concomitant]
     Route: 065
  3. ADDERALL [Concomitant]
     Route: 065
  4. 6-MP [Concomitant]
  5. PREDNISONE [Concomitant]
     Route: 065

REACTIONS (6)
  - Inflammatory bowel disease [Unknown]
  - Crohn^s disease [Unknown]
  - Attention deficit/hyperactivity disorder [Unknown]
  - Stress [Unknown]
  - Depression [Unknown]
  - Intestinal haemorrhage [Unknown]
